FAERS Safety Report 5836860-7 (Version None)
Quarter: 2008Q3

REPORT INFORMATION
  Report Type: 
  Country: None (occurrence: None)
  Receive Date: 20080807
  Receipt Date: 20080731
  Transmission Date: 20090109
  Serious: Yes (Hospitalization)
  Sender: FDA-Public Use
  Company Number: B0532078A

PATIENT
  Sex: Female
  Weight: 60 kg

DRUGS (2)
  1. TOPOTECAN [Suspect]
     Dosage: 1.3MG THREE TIMES PER WEEK
     Route: 042
  2. CARBOPLATIN [Suspect]
     Dosage: 386.25MG THREE TIMES PER WEEK
     Route: 042

REACTIONS (6)
  - C-REACTIVE PROTEIN INCREASED [None]
  - DEHYDRATION [None]
  - DIARRHOEA [None]
  - GENERAL PHYSICAL HEALTH DETERIORATION [None]
  - INFECTION [None]
  - THROMBOCYTOPENIA [None]
